FAERS Safety Report 14152273 (Version 5)
Quarter: 2018Q1

REPORT INFORMATION
  Report Type: Spontaneous
  Country: JP (occurrence: JP)
  Receive Date: 20171102
  Receipt Date: 20180220
  Transmission Date: 20180508
  Serious: Yes (Other)
  Sender: FDA-Public Use
  Company Number: JP-AMGEN-JPNSP2017166043

PATIENT
  Age: 71 Year
  Sex: Male

DRUGS (82)
  1. 5-FU                               /00098801/ [Suspect]
     Active Substance: FLUOROURACIL
     Dosage: 1400 MG, UNK
     Route: 041
     Dates: start: 20160217, end: 20160217
  2. 5-FU                               /00098801/ [Suspect]
     Active Substance: FLUOROURACIL
     Dosage: 1400 MG, UNK
     Route: 041
     Dates: start: 20160323, end: 20160323
  3. 5-FU                               /00098801/ [Suspect]
     Active Substance: FLUOROURACIL
     Dosage: 1400 MG, UNK
     Route: 041
     Dates: start: 20160420, end: 20160420
  4. 5-FU                               /00098801/ [Suspect]
     Active Substance: FLUOROURACIL
     Dosage: 1400 MG, UNK
     Route: 041
     Dates: start: 20160712, end: 20160712
  5. CAMPTO [Suspect]
     Active Substance: IRINOTECAN
     Dosage: 130 MG, UNK
     Route: 041
     Dates: start: 20160420, end: 20160420
  6. CAMPTO [Suspect]
     Active Substance: IRINOTECAN
     Dosage: 130 MG, UNK
     Route: 041
     Dates: start: 20160628, end: 20160628
  7. CAMPTO [Suspect]
     Active Substance: IRINOTECAN
     Dosage: 130 MG, UNK
     Route: 041
     Dates: start: 20160809, end: 20160809
  8. CAMPTO [Suspect]
     Active Substance: IRINOTECAN
     Dosage: UNK
     Route: 041
     Dates: start: 20161003, end: 20161003
  9. LEVOFOLINATE                       /06682101/ [Suspect]
     Active Substance: LEVOLEUCOVORIN
     Dosage: 290 MG, UNK
     Route: 041
     Dates: start: 20160308, end: 20160308
  10. LEVOFOLINATE                       /06682101/ [Suspect]
     Active Substance: LEVOLEUCOVORIN
     Dosage: 290 MG, UNK
     Route: 041
     Dates: start: 20160323, end: 20160323
  11. LEVOFOLINATE                       /06682101/ [Suspect]
     Active Substance: LEVOLEUCOVORIN
     Dosage: 290 MG, UNK
     Route: 041
     Dates: start: 20160614, end: 20160614
  12. DEXART [Concomitant]
     Active Substance: DEXAMETHASONE SODIUM PHOSPHATE
     Dosage: 6.6 MG, UNK
     Route: 065
  13. LORATADINE. [Concomitant]
     Active Substance: LORATADINE
     Dosage: 10 MG, QD
     Route: 048
     Dates: start: 20160216
  14. 5-FU                               /00098801/ [Suspect]
     Active Substance: FLUOROURACIL
     Dosage: 1400 MG, UNK
     Route: 041
     Dates: start: 20160308, end: 20160308
  15. 5-FU                               /00098801/ [Suspect]
     Active Substance: FLUOROURACIL
     Dosage: 1400 MG, UNK
     Route: 041
     Dates: start: 20160510, end: 20160510
  16. 5-FU                               /00098801/ [Suspect]
     Active Substance: FLUOROURACIL
     Dosage: 1400 MG, UNK
     Route: 041
     Dates: start: 20160915, end: 20160915
  17. LEVOFOLINATE                       /06682101/ [Suspect]
     Active Substance: LEVOLEUCOVORIN
     Dosage: 290 MG, UNK
     Route: 041
     Dates: start: 20160420, end: 20160420
  18. LEVOFOLINATE                       /06682101/ [Suspect]
     Active Substance: LEVOLEUCOVORIN
     Dosage: 290 MG, UNK
     Route: 041
     Dates: start: 20160823, end: 20160823
  19. ELPLAT [Concomitant]
     Active Substance: OXALIPLATIN
     Dosage: 85 MG, UNK
     Route: 041
     Dates: start: 20160217, end: 20160217
  20. ELPLAT [Concomitant]
     Active Substance: OXALIPLATIN
     Dosage: 85 MG, UNK
     Route: 041
     Dates: start: 20160628, end: 20160628
  21. DEXART [Concomitant]
     Active Substance: DEXAMETHASONE SODIUM PHOSPHATE
     Dosage: 3.3 MG, UNK
     Route: 065
  22. MAGMITT [Concomitant]
     Active Substance: MAGNESIUM OXIDE
     Dosage: 660 MG, TID
     Route: 048
     Dates: start: 20160608
  23. INSULIN GLARGINE BS [Concomitant]
     Dosage: 6 IU, UNK
     Route: 058
     Dates: start: 20161217
  24. 5-FU                               /00098801/ [Suspect]
     Active Substance: FLUOROURACIL
     Dosage: 1400 MG, UNK
     Route: 041
     Dates: start: 20160201, end: 20160201
  25. 5-FU                               /00098801/ [Suspect]
     Active Substance: FLUOROURACIL
     Dosage: 1400 MG, UNK
     Route: 041
     Dates: start: 20160601, end: 20160601
  26. 5-FU                               /00098801/ [Suspect]
     Active Substance: FLUOROURACIL
     Dosage: 1400 MG, UNK
     Route: 041
     Dates: start: 20160726, end: 20160726
  27. CAMPTO [Suspect]
     Active Substance: IRINOTECAN
     Dosage: 130 MG, UNK
     Route: 041
     Dates: start: 20160323, end: 20160323
  28. CAMPTO [Suspect]
     Active Substance: IRINOTECAN
     Dosage: 130 MG, UNK
     Route: 041
     Dates: start: 20160510, end: 20160510
  29. CAMPTO [Suspect]
     Active Substance: IRINOTECAN
     Dosage: 130 MG, UNK
     Route: 041
     Dates: start: 20160712, end: 20160712
  30. CAMPTO [Suspect]
     Active Substance: IRINOTECAN
     Dosage: 130 MG, UNK
     Route: 041
     Dates: start: 20160726, end: 20160726
  31. CAMPTO [Suspect]
     Active Substance: IRINOTECAN
     Dosage: 130 MG, UNK
     Route: 041
     Dates: start: 20160823, end: 20160823
  32. LEVOFOLINATE                       /06682101/ [Suspect]
     Active Substance: LEVOLEUCOVORIN
     Indication: PANCREATIC CARCINOMA
     Dosage: 290 MG, UNK
     Route: 041
     Dates: start: 20160201, end: 20160201
  33. LEVOFOLINATE                       /06682101/ [Suspect]
     Active Substance: LEVOLEUCOVORIN
     Dosage: 290 MG, UNK
     Route: 041
     Dates: start: 20160217, end: 20160217
  34. ELPLAT [Concomitant]
     Active Substance: OXALIPLATIN
     Dosage: 85 MG, UNK
     Route: 041
     Dates: start: 20160614, end: 20160614
  35. PROEMEND [Concomitant]
     Active Substance: FOSAPREPITANT
     Dosage: 150 MG, UNK
     Route: 041
  36. LIPACREON [Concomitant]
     Active Substance: PANCRELIPASE
     Dosage: 300 MG, TID
     Route: 048
     Dates: start: 20160506
  37. LANSOPRAZOLE. [Concomitant]
     Active Substance: LANSOPRAZOLE
     Dosage: 15 MG, QD
     Route: 048
     Dates: start: 20160222
  38. 5-FU                               /00098801/ [Suspect]
     Active Substance: FLUOROURACIL
     Indication: PANCREATIC CARCINOMA
     Dosage: 450 MG, UNK
     Route: 040
     Dates: start: 20160201, end: 20160201
  39. 5-FU                               /00098801/ [Suspect]
     Active Substance: FLUOROURACIL
     Dosage: 1400 MG, UNK
     Route: 041
     Dates: start: 20160628, end: 20160628
  40. 5-FU                               /00098801/ [Suspect]
     Active Substance: FLUOROURACIL
     Dosage: UNK
     Route: 041
     Dates: start: 20161003, end: 20161003
  41. CAMPTO [Suspect]
     Active Substance: IRINOTECAN
     Dosage: 130 MG, UNK
     Route: 041
     Dates: start: 20160614, end: 20160614
  42. LEVOFOLINATE                       /06682101/ [Suspect]
     Active Substance: LEVOLEUCOVORIN
     Dosage: 290 MG, UNK
     Route: 041
     Dates: start: 20160601, end: 20160601
  43. ELPLAT [Concomitant]
     Active Substance: OXALIPLATIN
     Dosage: 85 MG, UNK
     Route: 041
     Dates: start: 20160406, end: 20160406
  44. ELPLAT [Concomitant]
     Active Substance: OXALIPLATIN
     Dosage: 85 MG, UNK
     Route: 041
     Dates: start: 20160601, end: 20160601
  45. ELPLAT [Concomitant]
     Active Substance: OXALIPLATIN
     Dosage: 85 MG, UNK
     Route: 041
     Dates: start: 20160915, end: 20160915
  46. ALOXI [Concomitant]
     Active Substance: PALONOSETRON HYDROCHLORIDE
     Dosage: 0.75 MG, UNK
     Route: 041
  47. FEBURIC [Concomitant]
     Active Substance: FEBUXOSTAT
     Dosage: 10 MG, QD
     Route: 048
     Dates: start: 20160725
  48. GOSHAJINKIGAN [Concomitant]
     Active Substance: HERBALS
     Dosage: 2.5 G, TID
     Route: 048
     Dates: start: 20160817
  49. 5-FU                               /00098801/ [Suspect]
     Active Substance: FLUOROURACIL
     Dosage: 1400 MG, UNK
     Route: 041
     Dates: start: 20160406, end: 20160406
  50. 5-FU                               /00098801/ [Suspect]
     Active Substance: FLUOROURACIL
     Dosage: 1400 MG, UNK
     Route: 041
     Dates: start: 20160614, end: 20160614
  51. 5-FU                               /00098801/ [Suspect]
     Active Substance: FLUOROURACIL
     Dosage: 1400 MG, UNK
     Route: 041
     Dates: start: 20160823, end: 20160823
  52. CAMPTO [Suspect]
     Active Substance: IRINOTECAN
     Dosage: 130 MG, UNK
     Route: 041
     Dates: start: 20160601, end: 20160601
  53. LEVOFOLINATE                       /06682101/ [Suspect]
     Active Substance: LEVOLEUCOVORIN
     Dosage: 290 MG, UNK
     Route: 041
     Dates: start: 20160628, end: 20160628
  54. LEVOFOLINATE                       /06682101/ [Suspect]
     Active Substance: LEVOLEUCOVORIN
     Dosage: 290 MG, UNK
     Route: 041
     Dates: start: 20160726, end: 20160726
  55. ELPLAT [Concomitant]
     Active Substance: OXALIPLATIN
     Dosage: 85 MG, UNK
     Route: 041
     Dates: start: 20160420, end: 20160420
  56. ABRAXANE [Concomitant]
     Active Substance: PACLITAXEL
     Indication: PANCREATIC CARCINOMA
     Dosage: UNK
     Route: 041
  57. METHYCOBAL [Concomitant]
     Active Substance: METHYLCOBALAMIN
     Dosage: 500 MUG, TID
     Route: 048
     Dates: start: 20160212
  58. URSODEOXYCHOLIC ACID [Concomitant]
     Active Substance: URSODIOL
     Dosage: 200 MG, TID
     Route: 048
     Dates: start: 20160222
  59. NOVORAPID [Concomitant]
     Active Substance: INSULIN ASPART
     Dosage: 26 IU, UNK
     Route: 058
     Dates: start: 20161217
  60. CAMPTO [Suspect]
     Active Substance: IRINOTECAN
     Indication: PANCREATIC CARCINOMA
     Dosage: 150 MG, UNK
     Route: 041
     Dates: start: 20160201, end: 20160201
  61. CAMPTO [Suspect]
     Active Substance: IRINOTECAN
     Dosage: 130 MG, UNK
     Route: 041
     Dates: start: 20160217, end: 20160217
  62. CAMPTO [Suspect]
     Active Substance: IRINOTECAN
     Dosage: 130 MG, UNK
     Route: 041
     Dates: start: 20160308, end: 20160308
  63. LEVOFOLINATE                       /06682101/ [Suspect]
     Active Substance: LEVOLEUCOVORIN
     Dosage: 290 MG, UNK
     Route: 041
     Dates: start: 20160406, end: 20160406
  64. LEVOFOLINATE                       /06682101/ [Suspect]
     Active Substance: LEVOLEUCOVORIN
     Dosage: 290 MG, UNK
     Route: 041
     Dates: start: 20160510, end: 20160510
  65. LEVOFOLINATE                       /06682101/ [Suspect]
     Active Substance: LEVOLEUCOVORIN
     Dosage: 290 MG, UNK
     Route: 041
     Dates: start: 20160712, end: 20160712
  66. ELPLAT [Concomitant]
     Active Substance: OXALIPLATIN
     Dosage: 85 MG, UNK
     Route: 041
     Dates: start: 20160510, end: 20160510
  67. ELPLAT [Concomitant]
     Active Substance: OXALIPLATIN
     Dosage: 85 MG, UNK
     Route: 041
     Dates: start: 20160712, end: 20160712
  68. ELPLAT [Concomitant]
     Active Substance: OXALIPLATIN
     Dosage: 85 MG, UNK
     Route: 041
     Dates: start: 20160726, end: 20160726
  69. ELPLAT [Concomitant]
     Active Substance: OXALIPLATIN
     Dosage: 85 MG, UNK
     Route: 041
     Dates: start: 20160809, end: 20160809
  70. MIYA-BM [Concomitant]
     Active Substance: CLOSTRIDIUM BUTYRICUM SPORES STRAIN M-55
     Dosage: 20 MG, TID
     Route: 048
     Dates: start: 20160212
  71. G-LASTA [Suspect]
     Active Substance: PEGFILGRASTIM
     Indication: PRODUCT USED FOR UNKNOWN INDICATION
     Dosage: 3.6 MG, UNK
     Route: 058
  72. 5-FU                               /00098801/ [Suspect]
     Active Substance: FLUOROURACIL
     Dosage: 1400 MG, UNK
     Route: 041
     Dates: start: 20160809, end: 20160809
  73. CAMPTO [Suspect]
     Active Substance: IRINOTECAN
     Dosage: 130 MG, UNK
     Route: 041
     Dates: start: 20160406, end: 20160406
  74. LEVOFOLINATE                       /06682101/ [Suspect]
     Active Substance: LEVOLEUCOVORIN
     Dosage: 290 MG, UNK
     Route: 041
     Dates: start: 20160809, end: 20160809
  75. ELPLAT [Concomitant]
     Active Substance: OXALIPLATIN
     Dosage: 85 MG, UNK
     Route: 041
     Dates: start: 20160323, end: 20160323
  76. CAMPTO [Suspect]
     Active Substance: IRINOTECAN
     Dosage: UNK
     Route: 041
     Dates: start: 20160915, end: 20160915
  77. LEVOFOLINATE                       /06682101/ [Suspect]
     Active Substance: LEVOLEUCOVORIN
     Dosage: UNK
     Route: 041
     Dates: start: 20160915, end: 20160915
  78. LEVOFOLINATE                       /06682101/ [Suspect]
     Active Substance: LEVOLEUCOVORIN
     Dosage: UNK
     Route: 041
     Dates: start: 20161003, end: 20161003
  79. ELPLAT [Concomitant]
     Active Substance: OXALIPLATIN
     Indication: PANCREATIC CARCINOMA
     Dosage: 95 MG, UNK
     Route: 041
     Dates: start: 20160201, end: 20160201
  80. ELPLAT [Concomitant]
     Active Substance: OXALIPLATIN
     Dosage: 85 MG, UNK
     Route: 041
     Dates: start: 20160308, end: 20160308
  81. ELPLAT [Concomitant]
     Active Substance: OXALIPLATIN
     Dosage: 85 MG, UNK
     Route: 041
     Dates: start: 20160823, end: 20160823
  82. NEUTROGIN [Concomitant]
     Active Substance: LENOGRASTIM
     Indication: BONE MARROW FAILURE
     Dosage: 100 MUG, UNK
     Route: 058
     Dates: start: 20160209, end: 20160215

REACTIONS (1)
  - Interstitial lung disease [Recovering/Resolving]

NARRATIVE: CASE EVENT DATE: 20160905
